FAERS Safety Report 9737463 (Version 3)
Quarter: 2014Q1

REPORT INFORMATION
  Report Type: Spontaneous
  Country: US (occurrence: US)
  Receive Date: 20131206
  Receipt Date: 20140128
  Transmission Date: 20141002
  Serious: No
  Sender: FDA-Public Use
  Company Number: US-GILEAD-2013-0089244

PATIENT
  Sex: Female

DRUGS (3)
  1. LETAIRIS [Suspect]
     Indication: PRODUCT USED FOR UNKNOWN INDICATION
     Dosage: 5 MG, QD
     Route: 048
     Dates: start: 20131202
  2. ADCIRCA [Concomitant]
  3. TYVASO [Concomitant]

REACTIONS (3)
  - Oedema [Unknown]
  - Swelling [Unknown]
  - Fluid retention [Unknown]
